FAERS Safety Report 22306247 (Version 2)
Quarter: 2023Q2

REPORT INFORMATION
  Report Type: Report from Study
  Country: CA (occurrence: CA)
  Receive Date: 20230511
  Receipt Date: 20230518
  Transmission Date: 20230721
  Serious: Yes (Hospitalization)
  Sender: FDA-Public Use
  Company Number: CA-ABBVIE-4761275

PATIENT
  Age: 89 Year
  Sex: Male

DRUGS (1)
  1. LUPRON DEPOT [Suspect]
     Active Substance: LEUPROLIDE ACETATE
     Indication: Prostate cancer
     Route: 030
     Dates: start: 20220103

REACTIONS (7)
  - Fall [Unknown]
  - Contusion [Unknown]
  - Dizziness [Unknown]
  - Asthenia [Unknown]
  - Fine motor skill dysfunction [Unknown]
  - Skin laceration [Unknown]
  - Mobility decreased [Unknown]

NARRATIVE: CASE EVENT DATE: 20230506
